FAERS Safety Report 25368394 (Version 1)
Quarter: 2025Q2

REPORT INFORMATION
  Report Type: Spontaneous
  Country: GB (occurrence: GB)
  Receive Date: 20250528
  Receipt Date: 20250528
  Transmission Date: 20250716
  Serious: Yes (Other)
  Sender: TORRENT PHARMA INC.
  Company Number: None

PATIENT
  Age: 54 Year
  Sex: Female
  Weight: 55 kg

DRUGS (1)
  1. TOPIRAMATE [Suspect]
     Active Substance: TOPIRAMATE
     Indication: Migraine prophylaxis
     Route: 065

REACTIONS (4)
  - Mood swings [Recovered/Resolved]
  - Disturbance in attention [Recovered/Resolved]
  - Suicidal ideation [Recovered/Resolved]
  - Histrionic personality disorder [Recovered/Resolved]
